FAERS Safety Report 10886282 (Version 2)
Quarter: 2015Q3

REPORT INFORMATION
  Report Type: Spontaneous
  Country: US (occurrence: US)
  Receive Date: 20150304
  Receipt Date: 20150701
  Transmission Date: 20151125
  Serious: Yes (Other)
  Sender: FDA-Public Use
  Company Number: US-GLAXOSMITHKLINE-US2015GSK027365

PATIENT
  Age: 53 Year
  Sex: Male
  Weight: 95.2 kg

DRUGS (9)
  1. WELLBUTRIN SR [Suspect]
     Active Substance: BUPROPION HYDROCHLORIDE
     Indication: ANXIETY
  2. CYMBALTA [Suspect]
     Active Substance: DULOXETINE HYDROCHLORIDE
     Indication: DEPRESSION
     Dosage: UNK
     Route: 048
  3. LISINOPRIL. [Concomitant]
     Active Substance: LISINOPRIL
     Indication: HYPERTENSION
     Dosage: UNK
  4. XYREM [Suspect]
     Active Substance: SODIUM OXYBATE
     Indication: SOMNOLENCE
     Dosage: 3 G, BID
     Route: 048
     Dates: start: 201309
  5. XYREM [Suspect]
     Active Substance: SODIUM OXYBATE
     Dosage: 4.5 G, BID
     Route: 048
     Dates: start: 201311
  6. NUVIGIL [Concomitant]
     Active Substance: ARMODAFINIL
     Indication: SOMNOLENCE
     Dosage: UNK
  7. CYMBALTA [Suspect]
     Active Substance: DULOXETINE HYDROCHLORIDE
     Indication: ANXIETY
  8. WELLBUTRIN SR [Suspect]
     Active Substance: BUPROPION HYDROCHLORIDE
     Indication: DEPRESSION
     Dosage: UNK
     Route: 048
  9. XYREM [Suspect]
     Active Substance: SODIUM OXYBATE
     Indication: SLEEP DISORDER
     Dosage: 2.25 G, BID
     Route: 048
     Dates: start: 201307

REACTIONS (5)
  - Off label use [Not Recovered/Not Resolved]
  - Weight decreased [Recovering/Resolving]
  - Tremor [Not Recovered/Not Resolved]
  - Condition aggravated [Not Recovered/Not Resolved]
  - Parkinson^s disease [Unknown]

NARRATIVE: CASE EVENT DATE: 201307
